FAERS Safety Report 25143230 (Version 1)
Quarter: 2025Q2

REPORT INFORMATION
  Report Type: Report from Study
  Country: CA (occurrence: CA)
  Receive Date: 20250401
  Receipt Date: 20250401
  Transmission Date: 20250717
  Serious: Yes (Other)
  Sender: EXELIXIS
  Company Number: CA-IPSEN Group, Research and Development-2024-10826

PATIENT
  Sex: Female
  Weight: 48 kg

DRUGS (11)
  1. CABOMETYX [Suspect]
     Active Substance: CABOZANTINIB S-MALATE
     Indication: Renal cell carcinoma
     Dosage: 60MG DAILY
     Route: 048
     Dates: start: 20240405
  2. CABOMETYX [Suspect]
     Active Substance: CABOZANTINIB S-MALATE
     Dosage: DOSE REDUCED TO 40 MG DAILY
     Route: 048
  3. METOCLOPRAMIDE [Concomitant]
     Active Substance: METOCLOPRAMIDE
  4. PREDNISONE [Concomitant]
     Active Substance: PREDNISONE
  5. RAMIPRIL [Concomitant]
     Active Substance: RAMIPRIL
     Dosage: 7.5MG PO DIE
  6. ATORVASTATIN [Concomitant]
     Active Substance: ATORVASTATIN
     Dosage: 8MG PO DIE
  7. ASPIRIN [Concomitant]
     Active Substance: ASPIRIN
  8. HYDROMORPHONE [Concomitant]
     Active Substance: HYDROMORPHONE
  9. HYDROMORPHONE [Concomitant]
     Active Substance: HYDROMORPHONE
  10. ONDANSETRON [Concomitant]
     Active Substance: ONDANSETRON
     Indication: Nausea
  11. LOPERAMIDE [Concomitant]
     Active Substance: LOPERAMIDE

REACTIONS (4)
  - Hepatic function abnormal [Unknown]
  - Malignant neoplasm progression [Unknown]
  - Decreased appetite [Unknown]
  - Weight decreased [Unknown]
